FAERS Safety Report 15673725 (Version 4)
Quarter: 2019Q3

REPORT INFORMATION
  Report Type: Spontaneous
  Country: US (occurrence: US)
  Receive Date: 20181129
  Receipt Date: 20190903
  Transmission Date: 20191004
  Serious: Yes (Other)
  Sender: FDA-Public Use
  Company Number: US-PFIZER INC-2018406868

PATIENT
  Age: 52 Year
  Sex: Female
  Weight: 102 kg

DRUGS (4)
  1. EFFEXOR XR [Suspect]
     Active Substance: VENLAFAXINE HYDROCHLORIDE
     Dosage: 187.5 MG, UNK
  2. EFFEXOR XR [Suspect]
     Active Substance: VENLAFAXINE HYDROCHLORIDE
     Dosage: 225 MG, 1X/DAY (75MG THREE CAPSULES ONCE A DAY)/(3 CAPSULES IN THE MORNING)
     Route: 048
     Dates: start: 201810
  3. EFFEXOR XR [Suspect]
     Active Substance: VENLAFAXINE HYDROCHLORIDE
     Indication: DEPRESSION
     Dosage: 150 MG, UNK
  4. EFFEXOR XR [Suspect]
     Active Substance: VENLAFAXINE HYDROCHLORIDE
     Indication: ANXIETY
     Dosage: 37.5 MG, UNK

REACTIONS (5)
  - Migraine [Unknown]
  - Visual impairment [Unknown]
  - Seizure [Unknown]
  - Expired product administered [Unknown]
  - Drug hypersensitivity [Unknown]
